FAERS Safety Report 5528347-6 (Version None)
Quarter: 2007Q4

REPORT INFORMATION
  Report Type: 
  Country: None (occurrence: None)
  Receive Date: 20071128
  Receipt Date: 20071122
  Transmission Date: 20080405
  Serious: No
  Sender: FDA-Public Use
  Company Number: JP-AVENTIS-200712048JP

PATIENT
  Age: 67 Year
  Sex: Female
  Weight: 51.8 kg

DRUGS (7)
  1. LANTUS [Suspect]
     Indication: DIABETES MELLITUS
     Dosage: DOSE: 6 UNITS
     Route: 058
     Dates: start: 20070522, end: 20070719
  2. OPTICLIK (INSULIN INJECTION PEN) [Suspect]
     Indication: DIABETES MELLITUS
     Dates: start: 20070522, end: 20070719
  3. NOVORAPID [Concomitant]
     Dosage: DOSE: 8UNITS[4-0-4-0]
     Route: 058
     Dates: end: 20070425
  4. NOVORAPID [Concomitant]
     Route: 058
     Dates: start: 20070719
  5. GLYBURIDE [Concomitant]
     Indication: DIABETES MELLITUS
     Route: 048
     Dates: start: 20070426
  6. MELBIN                             /00082702/ [Concomitant]
     Indication: DIABETES MELLITUS
     Dosage: DOSE: 1 TABLET
     Route: 048
     Dates: start: 19980606
  7. YODEL [Concomitant]
     Indication: CONSTIPATION
     Dosage: DOSE: 3 TABLETS
     Route: 048
     Dates: start: 20030411

REACTIONS (4)
  - ABDOMINAL DISTENSION [None]
  - DYSGEUSIA [None]
  - HEPATIC FUNCTION ABNORMAL [None]
  - MALAISE [None]
